FAERS Safety Report 22792305 (Version 2)
Quarter: 2024Q1

REPORT INFORMATION
  Report Type: Report from Study
  Country: US (occurrence: US)
  Receive Date: 20230807
  Receipt Date: 20240102
  Transmission Date: 20240410
  Serious: No
  Sender: FDA-Public Use
  Company Number: US-002147023-NVSC2023US170556

PATIENT
  Age: 63 Year
  Sex: Female

DRUGS (3)
  1. ENTRESTO [Suspect]
     Active Substance: SACUBITRIL\VALSARTAN
     Indication: Cardiac failure
     Dosage: 1 DOSAGE FORM, BID
     Route: 048
     Dates: start: 202302
  2. METHOTREXATE [Suspect]
     Active Substance: METHOTREXATE
     Indication: Rheumatoid arthritis
     Dosage: UNK
     Route: 048
  3. FUROSEMIDE [Concomitant]
     Active Substance: FUROSEMIDE
     Indication: Diuretic therapy
     Dosage: 1 DOSAGE FORM, BID
     Route: 048
     Dates: start: 2023

REACTIONS (11)
  - Fluid retention [Recovered/Resolved]
  - Weight increased [Recovered/Resolved]
  - Swelling [Recovered/Resolved]
  - Muscle strain [Unknown]
  - Asthma [Unknown]
  - Wheezing [Recovered/Resolved]
  - Arthritis [Unknown]
  - Product dose omission issue [Unknown]
  - Product use issue [Unknown]
  - Pain in extremity [Unknown]
  - Peripheral coldness [Unknown]

NARRATIVE: CASE EVENT DATE: 20230701
